FAERS Safety Report 9705463 (Version 1)
Quarter: 2013Q4

REPORT INFORMATION
  Report Type: Spontaneous
  Country: US (occurrence: US)
  Receive Date: 20131122
  Receipt Date: 20131122
  Transmission Date: 20140711
  Serious: Yes (Hospitalization)
  Sender: FDA-Public Use
  Company Number: US-B.I. PHARMACEUTICALS,INC./RIDGEFIELD-2013-BI-37972BP

PATIENT
  Age: 86 Year
  Sex: Male
  Weight: 61 kg

DRUGS (16)
  1. SPIRIVA [Suspect]
     Dosage: 18 MCG
     Route: 055
     Dates: start: 2013
  2. ALBUTEROL [Concomitant]
     Route: 055
  3. AMITRYPTYLINE [Concomitant]
     Dosage: 50 MG
     Route: 048
  4. CALCITRIOL [Concomitant]
     Dosage: 0.5 MCG
     Route: 048
  5. DIGOXIN [Concomitant]
     Dosage: 125 MG
     Route: 048
  6. FERROUS SULFATE [Concomitant]
     Dosage: 50 MG
     Route: 048
  7. ADVAIR DISKUS [Concomitant]
     Dosage: FORMULATION : INHALATION SPRAY; STRENGTH: 250/50 MCG; DAILY DOSE: 500/100 MCG
     Route: 055
  8. MAGNESIUM OXIDE [Concomitant]
     Dosage: 800 MG
     Route: 048
  9. METOPROLOL [Concomitant]
     Dosage: 100 MG
     Route: 048
  10. PANTOPRAZOLE [Concomitant]
     Dosage: 40 MG
     Route: 048
  11. MIRALAX POWDER [Concomitant]
  12. POTASSIUM [Concomitant]
     Dosage: 40 MEQ
     Route: 048
  13. SIMVASTATIN [Concomitant]
     Dosage: 20 MG
     Route: 048
  14. TAMSULOSIN [Concomitant]
     Dosage: 0.8 MG
     Route: 048
  15. TORSEMIDE [Concomitant]
     Dosage: 40 MG
     Route: 048
  16. CALCITONIN [Concomitant]
     Dosage: 200 U
     Route: 045

REACTIONS (3)
  - Intestinal obstruction [Recovered/Resolved]
  - Ulcer haemorrhage [Recovered/Resolved]
  - Renal failure [Not Recovered/Not Resolved]
